FAERS Safety Report 11107840 (Version 2)
Quarter: 2015Q2

REPORT INFORMATION
  Report Type: Report from Study
  Country: US (occurrence: US)
  Receive Date: 20150512
  Receipt Date: 20150626
  Transmission Date: 20150821
  Serious: Yes (Other)
  Sender: FDA-Public Use
  Company Number: US-BAYER-2015-187489

PATIENT
  Age: 83 Year
  Sex: Male

DRUGS (2)
  1. STIVARGA [Suspect]
     Active Substance: REGORAFENIB
     Indication: COLORECTAL CANCER STAGE IV
     Dosage: 160MG, DAILY DOSE
     Route: 048
     Dates: start: 20150425
  2. STIVARGA [Suspect]
     Active Substance: REGORAFENIB
     Indication: METASTASES TO LIVER
     Dosage: 80 MG, QD
     Route: 048
     Dates: start: 20150507, end: 20150608

REACTIONS (9)
  - Joint swelling [None]
  - Erythema [None]
  - Peripheral swelling [None]
  - Pain in extremity [None]
  - Incorrect dosage administered [None]
  - Skin warm [None]
  - Dry skin [None]
  - Skin fissures [None]
  - Dysphonia [None]

NARRATIVE: CASE EVENT DATE: 20150425
